FAERS Safety Report 6892564-3 (Version None)
Quarter: 2010Q3

REPORT INFORMATION
  Report Type: 
  Country: None (occurrence: None)
  Receive Date: 20100731
  Receipt Date: 20080715
  Transmission Date: 20110219
  Serious: Yes (Other)
  Sender: FDA-Public Use
  Company Number: US-PFIZER INC-2008059202

PATIENT
  Sex: Female

DRUGS (1)
  1. NORVASC [Suspect]
     Dates: start: 20080701

REACTIONS (5)
  - HYPERSENSITIVITY [None]
  - OESOPHAGEAL OEDEMA [None]
  - OROPHARYNGEAL PAIN [None]
  - PHARYNGEAL OEDEMA [None]
  - SWOLLEN TONGUE [None]
